FAERS Safety Report 13445669 (Version 2)
Quarter: 2017Q2

REPORT INFORMATION
  Report Type: Spontaneous
  Country: US (occurrence: US)
  Receive Date: 20170416
  Receipt Date: 20170518
  Transmission Date: 20170830
  Serious: No
  Sender: FDA-Public Use
  Company Number: US-TEVA-756284ACC

PATIENT
  Sex: Male

DRUGS (6)
  1. POTASSIUM [Concomitant]
     Active Substance: POTASSIUM
  2. PROAIR HFA [Suspect]
     Active Substance: ALBUTEROL SULFATE
     Route: 065
  3. METOPROLOL. [Concomitant]
     Active Substance: METOPROLOL
  4. AMLODIPINE [Concomitant]
     Active Substance: AMLODIPINE BESYLATE
  5. LASIX [Concomitant]
     Active Substance: FUROSEMIDE
  6. XARELTO [Concomitant]
     Active Substance: RIVAROXABAN

REACTIONS (2)
  - Drug ineffective [Recovered/Resolved]
  - Pharyngitis streptococcal [Recovered/Resolved]
